FAERS Safety Report 13948444 (Version 3)
Quarter: 2017Q3

REPORT INFORMATION
  Report Type: Spontaneous
  Country: IR (occurrence: IR)
  Receive Date: 20170908
  Receipt Date: 20170928
  Transmission Date: 20171128
  Serious: Yes (Other)
  Sender: FDA-Public Use
  Company Number: PHHY2017IR130045

PATIENT
  Age: 32 Year
  Sex: Male

DRUGS (3)
  1. RITALIN [Suspect]
     Active Substance: METHYLPHENIDATE HYDROCHLORIDE
     Indication: DISTURBANCE IN ATTENTION
     Dosage: 10 MG, UNK
     Route: 065
  2. RITALIN [Suspect]
     Active Substance: METHYLPHENIDATE HYDROCHLORIDE
     Dosage: 10 MG, BID
     Route: 065
  3. RITALIN [Suspect]
     Active Substance: METHYLPHENIDATE HYDROCHLORIDE
     Dosage: 200 MG, QD (200 MG/DAY IN DIVIDED DOSES ABOUT ONE TAB PER HOUR)
     Route: 065

REACTIONS (6)
  - Tachycardia [Recovered/Resolved]
  - Chest pain [Unknown]
  - Overdose [Unknown]
  - Drug dependence [Unknown]
  - Restlessness [Unknown]
  - Palpitations [Unknown]
